FAERS Safety Report 8737940 (Version 3)
Quarter: 2013Q4

REPORT INFORMATION
  Report Type: Spontaneous
  Country: US (occurrence: US)
  Receive Date: 20120823
  Receipt Date: 20131031
  Transmission Date: 20140711
  Serious: Yes (Hospitalization, Other)
  Sender: FDA-Public Use
  Company Number: US-009507513-2012SP034591

PATIENT
  Age: 52 Year
  Sex: Female
  Weight: 79.82 kg

DRUGS (6)
  1. INTRONA [Suspect]
     Indication: MALIGNANT MELANOMA
     Dosage: UNK
     Route: 042
     Dates: start: 200604, end: 200607
  2. RENVELA [Concomitant]
  3. DIOVAN [Concomitant]
  4. ALLOPURINOL [Concomitant]
  5. AMLODIPINE [Concomitant]
  6. LIPITOR [Concomitant]

REACTIONS (17)
  - Biopsy kidney [Unknown]
  - Renal failure acute [Recovering/Resolving]
  - Anaemia of chronic disease [Unknown]
  - Catheter placement [Unknown]
  - Catheter removal [Unknown]
  - Dizziness [Not Recovered/Not Resolved]
  - Malaise [Not Recovered/Not Resolved]
  - Fatigue [Not Recovered/Not Resolved]
  - Renal failure chronic [Not Recovered/Not Resolved]
  - Pain in extremity [Unknown]
  - Arteriosclerosis [Unknown]
  - Eating disorder symptom [Unknown]
  - Hypertension [Unknown]
  - Glomerulonephritis [Unknown]
  - Renal tubular necrosis [Unknown]
  - Renal disorder [Unknown]
  - Tubulointerstitial nephritis [Unknown]
